FAERS Safety Report 8902667 (Version 1)
Quarter: 2012Q4

REPORT INFORMATION
  Report Type: 
  Country: TR (occurrence: TR)
  Receive Date: 20121112
  Receipt Date: 20121112
  Transmission Date: 20130627
  Serious: Yes (Hospitalization)
  Sender: FDA-Public Use
  Company Number: TR-PFIZER INC-2012279215

PATIENT
  Age: 46 Year
  Weight: 165 kg

DRUGS (3)
  1. ADRIBLASTINA [Suspect]
     Dosage: UNK
     Route: 042
  2. HOLOXAN [Suspect]
     Dosage: UNK
     Route: 042
  3. MESNA [Suspect]
     Dosage: UNK
     Route: 042

REACTIONS (3)
  - Altered state of consciousness [Recovered/Resolved]
  - Agitation [Recovered/Resolved]
  - Dyskinesia [Recovered/Resolved]
